FAERS Safety Report 9891372 (Version 1)
Quarter: 2014Q1

REPORT INFORMATION
  Report Type: Spontaneous
  Country: US (occurrence: US)
  Receive Date: 20140212
  Receipt Date: 20140212
  Transmission Date: 20141002
  Serious: No
  Sender: FDA-Public Use
  Company Number: US-PFIZER INC-2014039803

PATIENT
  Age: 40 Year
  Sex: Female
  Weight: 68.48 kg

DRUGS (1)
  1. ZOLOFT [Suspect]
     Indication: DEPRESSION
     Dosage: 50 MG, DAILY

REACTIONS (6)
  - Weight decreased [Unknown]
  - Anxiety [Unknown]
  - Irritability [Unknown]
  - Dizziness [Unknown]
  - Fatigue [Unknown]
  - Menstrual disorder [Unknown]
